FAERS Safety Report 9288085 (Version 1)
Quarter: 2013Q2

REPORT INFORMATION
  Report Type: Spontaneous
  Country: SE (occurrence: SE)
  Receive Date: 20130514
  Receipt Date: 20130514
  Transmission Date: 20140414
  Serious: Yes (Other)
  Sender: FDA-Public Use
  Company Number: SE-JNJFOC-20130500774

PATIENT
  Age: 30 Year
  Sex: Female

DRUGS (1)
  1. ORTHONETT NOVUM [Suspect]
     Indication: CONTRACEPTION
     Route: 065
     Dates: end: 20100829

REACTIONS (2)
  - Venous thrombosis limb [Unknown]
  - Ankle fracture [Unknown]
